FAERS Safety Report 6687042-0 (Version None)
Quarter: 2010Q2

REPORT INFORMATION
  Report Type: 
  Country: None (occurrence: None)
  Receive Date: 20100419
  Receipt Date: 20100407
  Transmission Date: 20101027
  Serious: Yes (Other)
  Sender: FDA-Public Use
  Company Number: JP-SANOFI-AVENTIS-2010SA021450

PATIENT
  Age: 59 Year
  Sex: Female

DRUGS (6)
  1. OXALIPLATIN [Suspect]
     Indication: COLON CANCER
     Route: 041
  2. OXALIPLATIN [Suspect]
     Route: 041
  3. CALCIUM LEVOFOLINATE [Concomitant]
     Indication: COLON CANCER
     Route: 041
  4. CALCIUM LEVOFOLINATE [Concomitant]
     Route: 041
  5. FLUOROURACIL [Concomitant]
     Indication: COLON CANCER
     Route: 042
  6. FLUOROURACIL [Concomitant]
     Route: 042

REACTIONS (1)
  - GASTROINTESTINAL PERFORATION [None]
